FAERS Safety Report 9464906 (Version 1)
Quarter: 2013Q3

REPORT INFORMATION
  Report Type: Spontaneous
  Country: FR (occurrence: FR)
  Receive Date: 20130819
  Receipt Date: 20130819
  Transmission Date: 20140515
  Serious: Yes (Hospitalization)
  Sender: FDA-Public Use
  Company Number: FR-UCBSA-095417

PATIENT
  Age: 46 Year
  Sex: Male

DRUGS (3)
  1. KEPPRA [Suspect]
     Route: 048
     Dates: start: 201303, end: 201303
  2. EPITOMAX [Concomitant]
     Dosage: UNKNOWN DOSE
  3. LAMICTAL [Concomitant]
     Dosage: UNKNOWN DOSE

REACTIONS (4)
  - Balance disorder [Recovered/Resolved]
  - Gastrointestinal disorder [Recovered/Resolved]
  - Abdominal pain [Recovered/Resolved]
  - Condition aggravated [Recovered/Resolved]
